FAERS Safety Report 6545573-8 (Version None)
Quarter: 2010Q1

REPORT INFORMATION
  Report Type: 
  Country: None (occurrence: None)
  Receive Date: 20100121
  Receipt Date: 20100118
  Transmission Date: 20100710
  Serious: Yes (Hospitalization)
  Sender: FDA-Public Use
  Company Number: FR-PFIZER INC-2009259854

PATIENT
  Age: 30 Year
  Sex: Female

DRUGS (4)
  1. SALAZOPYRIN [Suspect]
     Dosage: UNK
     Route: 048
     Dates: start: 20090201
  2. HUMIRA [Suspect]
     Dosage: UNK
     Route: 058
     Dates: start: 20080701, end: 20090101
  3. IMUREL [Suspect]
     Indication: CROHN'S DISEASE
     Dosage: 150 MG, 1X/DAY
     Route: 048
     Dates: start: 20040101
  4. IMUREL [Suspect]
     Indication: ANKYLOSING SPONDYLITIS

REACTIONS (1)
  - OPTIC NEURITIS [None]
